FAERS Safety Report 17793983 (Version 1)
Quarter: 2020Q2

REPORT INFORMATION
  Report Type: Spontaneous
  Country: DE (occurrence: DE)
  Receive Date: 20200515
  Receipt Date: 20200515
  Transmission Date: 20200714
  Serious: Yes (Hospitalization)
  Sender: FDA-Public Use
  Company Number: DE-TEVA-2020-DE-1234382

PATIENT
  Age: 56 Year
  Sex: Male
  Weight: 69 kg

DRUGS (6)
  1. CINNARIZIN/DIMENHYDRINAT [Concomitant]
     Dosage: 20|40 MG,
  2. TILIDIN COMP. [Concomitant]
     Active Substance: TILIDINE
  3. PREDNISOLON [Suspect]
     Active Substance: PREDNISOLONE
     Dosage: 50 MILLIGRAM DAILY; 1-0-0-0
  4. BISOPROLOL [Concomitant]
     Active Substance: BISOPROLOL
     Dosage: 10 MILLIGRAM DAILY;  1-0-0-0
  5. ACETYLSALICYLSAURE [Concomitant]
     Active Substance: ASPIRIN
     Dosage: 100 MILLIGRAM DAILY; 1-0-0-0
  6. NASACORT 55MIKROGRAMM/DOSIS 120SPRUHSTOBE [Concomitant]
     Dosage: 55 MICROGRAMS / DOSE,120 SPRAYS

REACTIONS (10)
  - Abdominal tenderness [Unknown]
  - Dysuria [Unknown]
  - Pain [Unknown]
  - Pyrexia [Unknown]
  - Vomiting [Unknown]
  - Pain in extremity [Unknown]
  - Chest pain [Unknown]
  - Headache [Unknown]
  - Nausea [Unknown]
  - Asthenia [Unknown]
